FAERS Safety Report 4491411-7 (Version None)
Quarter: 2004Q4

REPORT INFORMATION
  Report Type: 
  Country: None (occurrence: None)
  Receive Date: 20041101
  Receipt Date: 20041101
  Transmission Date: 20050328
  Serious: Yes (Death)
  Sender: FDA-Public Use
  Company Number: None

PATIENT
  Sex: Female
  Weight: 61.6 kg

DRUGS (2)
  1. ENOXAPARIN SODIUM [Suspect]
     Dosage: VARYING
  2. WARFARIN [Suspect]
     Dosage: 60MG BID SUBCUTANEO
     Route: 058

REACTIONS (2)
  - FALL [None]
  - SUBDURAL HAEMORRHAGE [None]
